FAERS Safety Report 5327786-6 (Version None)
Quarter: 2007Q2

REPORT INFORMATION
  Report Type: 
  Country: None (occurrence: None)
  Receive Date: 20070226
  Receipt Date: 20061207
  Transmission Date: 20071010
  Serious: Yes (Other)
  Sender: FDA-Public Use
  Company Number: WAES 0612USA01327

PATIENT
  Age: 67 Year
  Sex: Male

DRUGS (2)
  1. VYTORIN [Suspect]
     Dosage: 10-10 MG/PO
     Route: 048
     Dates: end: 20061201
  2. ZOCOR [Concomitant]

REACTIONS (1)
  - ALANINE AMINOTRANSFERASE INCREASED [None]
